FAERS Safety Report 8204108-4 (Version None)
Quarter: 2012Q1

REPORT INFORMATION
  Report Type: 
  Country: None (occurrence: None)
  Receive Date: 20120227
  Receipt Date: 20111123
  Transmission Date: 20120608
  Serious: Yes (Other)
  Sender: FDA-Public Use
  Company Number: 340149

PATIENT
  Age: 55 Year
  Sex: Male
  Weight: 111.6 kg

DRUGS (1)
  1. VICTOZA [Suspect]
     Indication: TYPE 2 DIABETES MELLITUS
     Dosage: 1.2 MG, QD, SUBCUTANEOUS
     Route: 058
     Dates: start: 20111019, end: 20111104

REACTIONS (2)
  - PANCREATITIS [None]
  - DIARRHOEA [None]
